FAERS Safety Report 15363690 (Version 4)
Quarter: 2019Q1

REPORT INFORMATION
  Report Type: Spontaneous
  Country: US (occurrence: US)
  Receive Date: 20180907
  Receipt Date: 20190116
  Transmission Date: 20190417
  Serious: Yes (Hospitalization)
  Sender: FDA-Public Use
  Company Number: PHEH2018US036875

PATIENT
  Age: 69 Year
  Sex: Female

DRUGS (4)
  1. LETROZOLE. [Suspect]
     Active Substance: LETROZOLE
     Indication: BREAST CANCER METASTATIC
  2. LETROZOLE. [Suspect]
     Active Substance: LETROZOLE
     Indication: OESTROGEN REPLACEMENT THERAPY
     Dosage: 1 OT, QD
     Route: 065
     Dates: start: 20180220
  3. IBRANCE [Suspect]
     Active Substance: PALBOCICLIB
     Indication: BREAST CANCER METASTATIC
     Dosage: 125 MG, QD
     Route: 065
     Dates: start: 201803
  4. LEVOTHYROXINE. [Concomitant]
     Active Substance: LEVOTHYROXINE
     Indication: PRODUCT USED FOR UNKNOWN INDICATION
     Dosage: UNK
     Route: 065
     Dates: start: 201802

REACTIONS (12)
  - Weight increased [Not Recovered/Not Resolved]
  - Alopecia [Recovered/Resolved]
  - Alopecia [Not Recovered/Not Resolved]
  - Blood count abnormal [Recovered/Resolved]
  - Malaise [Unknown]
  - Cognitive disorder [Not Recovered/Not Resolved]
  - Memory impairment [Not Recovered/Not Resolved]
  - Arthralgia [Not Recovered/Not Resolved]
  - Fatigue [Not Recovered/Not Resolved]
  - Hot flush [Recovering/Resolving]
  - Pain [Not Recovered/Not Resolved]
  - Osteoporosis [Not Recovered/Not Resolved]

NARRATIVE: CASE EVENT DATE: 201803
